FAERS Safety Report 7054109-7 (Version None)
Quarter: 2010Q4

REPORT INFORMATION
  Report Type: 
  Country: None (occurrence: None)
  Receive Date: 20101020
  Receipt Date: 20101008
  Transmission Date: 20110411
  Serious: Yes (Other)
  Sender: FDA-Public Use
  Company Number: PHHY2010US67806

PATIENT
  Sex: Female

DRUGS (1)
  1. ZOMETA [Suspect]
     Dosage: UNK
     Route: 042
     Dates: end: 20100909

REACTIONS (2)
  - BONE DENSITY DECREASED [None]
  - JAW DISORDER [None]
